FAERS Safety Report 6703428-X (Version None)
Quarter: 2010Q2

REPORT INFORMATION
  Report Type: 
  Country: None (occurrence: None)
  Receive Date: 20100430
  Receipt Date: 20100423
  Transmission Date: 20101027
  Serious: Yes (Hospitalization, Other)
  Sender: FDA-Public Use
  Company Number: BR-ABBOTT-09P-020-0604171-00

PATIENT
  Sex: Female
  Weight: 90 kg

DRUGS (11)
  1. HUMIRA [Suspect]
     Indication: RHEUMATOID ARTHRITIS
     Route: 058
  2. HUMIRA [Suspect]
     Route: 058
  3. UNKNOWN ANTIBIOTIC [Suspect]
     Indication: NIPPLE INFECTION
  4. PREDNISONE [Concomitant]
     Indication: RHEUMATOID ARTHRITIS
     Dosage: 2 TABLETS A DAY
     Route: 048
     Dates: start: 19990101
  5. METHOTREXATE [Concomitant]
     Indication: RHEUMATOID ARTHRITIS
     Dosage: FORM STRENGTH: 7.5 MILLIGRAMS 2 CAPSULES
     Route: 048
     Dates: start: 20060101
  6. FOLIC ACID [Concomitant]
     Indication: RHEUMATOID ARTHRITIS
     Dosage: FORM STRENGTH 5 MILLIGRAMS/2 TABLETS
     Route: 048
     Dates: start: 20070101
  7. DORFLEX [Concomitant]
     Indication: PAIN
     Route: 048
  8. DIPYRONE [Concomitant]
     Indication: PAIN
  9. MELOXICAM [Concomitant]
     Indication: OSTEOARTHRITIS
     Route: 048
     Dates: start: 20100116
  10. PARACETAMOL [Concomitant]
     Indication: PAIN
     Route: 048
  11. CORTICOIDS [Concomitant]
     Indication: DRUG USE FOR UNKNOWN INDICATION

REACTIONS (10)
  - ABDOMINAL PAIN [None]
  - ARTHRALGIA [None]
  - DERMATITIS ALLERGIC [None]
  - DRUG HYPERSENSITIVITY [None]
  - INJECTION SITE PAIN [None]
  - LEIOMYOMA [None]
  - NIPPLE INFECTION [None]
  - OVARIAN CYST [None]
  - PAIN IN EXTREMITY [None]
  - WEIGHT DECREASED [None]
